FAERS Safety Report 10700752 (Version 1)
Quarter: 2015Q1

REPORT INFORMATION
  Report Type: Spontaneous
  Country: US (occurrence: None)
  Receive Date: 20150108
  Receipt Date: 20150108
  Transmission Date: 20150721
  Serious: Yes (Other)
  Sender: FDA-Public Use
  Company Number: None

PATIENT
  Age: 55 Year
  Sex: Male
  Weight: 79.38 kg

DRUGS (5)
  1. SOTALOL. [Suspect]
     Active Substance: SOTALOL
     Indication: ATRIAL FIBRILLATION
     Route: 048
     Dates: start: 20140812, end: 20140911
  2. VITAMIN B12 [Concomitant]
     Active Substance: CYANOCOBALAMIN
  3. MULTAQ [Concomitant]
     Active Substance: DRONEDARONE
  4. SIMVASTATIN. [Concomitant]
     Active Substance: SIMVASTATIN
  5. D3 5000IU [Concomitant]

REACTIONS (2)
  - Pain [None]
  - Sunburn [None]

NARRATIVE: CASE EVENT DATE: 201408
